FAERS Safety Report 5865242-7 (Version None)
Quarter: 2008Q3

REPORT INFORMATION
  Report Type: 
  Country: None (occurrence: None)
  Receive Date: 20080829
  Receipt Date: 20080814
  Transmission Date: 20090109
  Serious: No
  Sender: FDA-Public Use
  Company Number: US-ABBOTT-08P-163-0466257-00

PATIENT
  Sex: Male
  Weight: 136 kg

DRUGS (1)
  1. SIMCOR [Suspect]
     Indication: BLOOD TRIGLYCERIDES INCREASED
     Dosage: 500/20MG TWICE A DAY
     Route: 048
     Dates: start: 20080701

REACTIONS (1)
  - BLOOD GLUCOSE INCREASED [None]
